FAERS Safety Report 16640572 (Version 3)
Quarter: 2019Q4

REPORT INFORMATION
  Report Type: Report from Study
  Country: None (occurrence: US)
  Receive Date: 20190729
  Receipt Date: 20191225
  Transmission Date: 20200122
  Serious: Yes (Hospitalization)
  Sender: FDA-Public Use
  Company Number: US-ABBVIE-19K-163-2866048-00

PATIENT
  Sex: Female
  Weight: 46.31 kg

DRUGS (1)
  1. HUMIRA [Suspect]
     Active Substance: ADALIMUMAB
     Indication: CROHN^S DISEASE
     Dosage: CITRATE FREE
     Route: 058

REACTIONS (4)
  - Renal impairment [Recovered/Resolved]
  - Pneumonia aspiration [Recovered/Resolved]
  - Dehydration [Unknown]
  - Dysphagia [Unknown]
